FAERS Safety Report 5604245-4 (Version None)
Quarter: 2008Q1

REPORT INFORMATION
  Report Type: 
  Country: None (occurrence: None)
  Receive Date: 20080128
  Receipt Date: 20080116
  Transmission Date: 20080703
  Serious: Yes (Death)
  Sender: FDA-Public Use
  Company Number: GB-TYCO HEALTHCARE/MALLINCKRODT-T200800053

PATIENT

DRUGS (5)
  1. OPTIRAY 300 [Suspect]
     Indication: ANGIOGRAM
     Dosage: UNK, SINGLE
     Route: 042
  2. CLEXANE [Concomitant]
     Dosage: 40 MG, QD
     Route: 058
  3. CLOPIDOGREL [Concomitant]
     Dosage: 75 MG, QD
     Route: 048
  4. FUROSEMIDE [Concomitant]
     Indication: HYPERTENSION
     Dosage: 40 MG, QD
     Route: 048
  5. LANSOPRAZOLE [Concomitant]
     Dosage: 30 MG, QD
     Route: 048

REACTIONS (1)
  - RENAL FAILURE ACUTE [None]
